FAERS Safety Report 11167547 (Version 1)
Quarter: 2015Q2

REPORT INFORMATION
  Report Type: Spontaneous
  Country: US (occurrence: None)
  Receive Date: 20150604
  Receipt Date: 20150604
  Transmission Date: 20150821
  Serious: No
  Sender: FDA-Public Use
  Company Number: None

PATIENT
  Age: 67 Year
  Sex: Male

DRUGS (1)
  1. STIVARGA [Suspect]
     Active Substance: REGORAFENIB
     Indication: PRODUCT USED FOR UNKNOWN INDICATION
     Dosage: UD
     Route: 048
     Dates: start: 20150507

REACTIONS (4)
  - Therapy change [None]
  - Activities of daily living impaired [None]
  - Therapy cessation [None]
  - Peripheral swelling [None]

NARRATIVE: CASE EVENT DATE: 20150514
